FAERS Safety Report 4875740-0 (Version None)
Quarter: 2006Q1

REPORT INFORMATION
  Report Type: 
  Country: None (occurrence: None)
  Receive Date: 20060105
  Receipt Date: 20051229
  Transmission Date: 20060701
  Serious: Yes (Hospitalization, Other)
  Sender: FDA-Public Use
  Company Number: HQWYE658321NOV05

PATIENT
  Age: 28 Year
  Sex: Female

DRUGS (12)
  1. CEFSPAN (CEFIXIME, UNSPEC) [Suspect]
     Indication: NASOPHARYNGITIS
     Dosage: 100 MG 2X PER 1 DAY, ORAL
     Route: 048
     Dates: start: 20050804, end: 20050804
  2. CIPROFLOXACIN HYDROCHLORIDE [Suspect]
     Indication: ENTEROCOLITIS
     Dosage: 100 MG 3X PER 1 DAY, ORAL
     Route: 048
     Dates: start: 20050725, end: 20050727
  3. CLARITHROMYCIN [Suspect]
     Indication: NASOPHARYNGITIS
     Dosage: 100 MG 2X PER 1 DAY, ORAL
     Route: 048
     Dates: start: 20050708, end: 20050714
  4. FLUMARK (ENOXACIN, ) [Suspect]
     Indication: ENTEROCOLITIS
     Dosage: 100 MG 3X PER 1 DAY, ORAL
     Route: 048
     Dates: start: 20050719, end: 20050727
  5. ALLERGIN (CHLORPHENAMINE MALEATE) [Concomitant]
  6. SULPYRINE (METAMIZOLE SODIUM) [Concomitant]
  7. KIMOTAB S (BROMELAINS) [Concomitant]
  8. ASTOMIN (DIMEMORFAN PHOSPHATE) [Concomitant]
  9. CYSCARBON (CARBOCISTEINE) [Concomitant]
  10. LOXOPROFEN SODIUM (LOXOPROFEN SODIUM) [Concomitant]
  11. TANNALBIN (ALBUMIN TANNATE) [Concomitant]
  12. BIOFERMIN R (STREPTOCOCCUS FAECALIS) [Concomitant]

REACTIONS (5)
  - CONDITION AGGRAVATED [None]
  - EOSINOPHIL COUNT INCREASED [None]
  - LYMPHOCYTE STIMULATION TEST POSITIVE [None]
  - OEDEMA PERIPHERAL [None]
  - WHITE BLOOD CELL COUNT INCREASED [None]
